FAERS Safety Report 9008822 (Version 1)
Quarter: 2013Q1

REPORT INFORMATION
  Report Type: Spontaneous
  Country: US (occurrence: US)
  Receive Date: 20130111
  Receipt Date: 20130111
  Transmission Date: 20140127
  Serious: Yes (Hospitalization, Other)
  Sender: FDA-Public Use
  Company Number: US-009507513-1301USA001465

PATIENT
  Age: 77 Year
  Sex: Male

DRUGS (5)
  1. MONTELUKAST SODIUM [Suspect]
     Indication: PRODUCT USED FOR UNKNOWN INDICATION
     Dosage: 10 MG, QD
     Route: 048
  2. GLYBURIDE [Suspect]
     Dosage: 5 MG, QD
     Route: 048
  3. ENALAPRIL MALEATE [Suspect]
     Dosage: 20 MG, QD
  4. ADIRO [Suspect]
     Dosage: 100 MG, QD
     Route: 048
  5. AUGMENTIN [Suspect]
     Dosage: .5 G, TID
     Route: 048

REACTIONS (3)
  - Pancreatitis chronic [Unknown]
  - Pancreatic atrophy [Unknown]
  - Hepatitis cholestatic [Unknown]
